FAERS Safety Report 8309628-X (Version None)
Quarter: 2012Q2

REPORT INFORMATION
  Report Type: 
  Country: None (occurrence: None)
  Receive Date: 20120425
  Receipt Date: 20120418
  Transmission Date: 20120825
  Serious: Yes (Death)
  Sender: FDA-Public Use
  Company Number: CA-JNJFOC-20120407763

PATIENT
  Sex: Male
  Weight: 84 kg

DRUGS (11)
  1. RATIO EMTEC [Concomitant]
     Route: 065
  2. VITAMIN B-12 [Concomitant]
     Route: 065
  3. ALLOPURINOL [Concomitant]
     Route: 065
  4. ASCORBIC ACID [Concomitant]
     Route: 065
  5. PRILOSEC [Concomitant]
     Route: 065
  6. PANTOPRAZOLE [Concomitant]
     Route: 065
  7. HYZAAR [Concomitant]
     Route: 065
  8. ZOPICLONE [Concomitant]
     Route: 065
  9. REMICADE [Suspect]
     Indication: ANKYLOSING SPONDYLITIS
     Route: 042
     Dates: start: 20080403
  10. SODIUM BICARBONATE [Concomitant]
     Route: 065
  11. EFFEXOR XR [Concomitant]
     Route: 065

REACTIONS (1)
  - DEATH [None]
